FAERS Safety Report 5562331-1 (Version None)
Quarter: 2007Q4

REPORT INFORMATION
  Report Type: 
  Country: None (occurrence: None)
  Receive Date: 20071215
  Receipt Date: 20070813
  Transmission Date: 20080405
  Serious: No
  Sender: FDA-Public Use
  Company Number: US-AMGEN-US238736

PATIENT
  Sex: Female

DRUGS (3)
  1. ENBREL [Suspect]
     Indication: RHEUMATOID ARTHRITIS
     Route: 058
     Dates: start: 20070201
  2. METHOTREXATE [Suspect]
     Route: 058
     Dates: start: 20070201
  3. PLAQUENIL [Concomitant]
     Route: 048
     Dates: start: 20070701

REACTIONS (15)
  - BACTERIAL INFECTION [None]
  - BRONCHITIS [None]
  - INJECTION SITE BRUISING [None]
  - INJECTION SITE ERYTHEMA [None]
  - INJECTION SITE PAIN [None]
  - INJECTION SITE PRURITUS [None]
  - INJECTION SITE RASH [None]
  - INJECTION SITE SWELLING [None]
  - INJECTION SITE WARMTH [None]
  - NASOPHARYNGITIS [None]
  - RHEUMATOID ARTHRITIS [None]
  - SINUSITIS [None]
  - SKIN LACERATION [None]
  - VAGINAL INFECTION [None]
  - WOUND INFECTION [None]
